FAERS Safety Report 5189056-9 (Version None)
Quarter: 2006Q4

REPORT INFORMATION
  Report Type: 
  Country: None (occurrence: None)
  Receive Date: 20061215
  Receipt Date: 20061207
  Transmission Date: 20070319
  Serious: Yes (Death, Life-Threatening)
  Sender: FDA-Public Use
  Company Number: ST-2006-009401

PATIENT
  Age: 61 Year
  Sex: Male
  Weight: 68 kg

DRUGS (8)
  1. OLMETEC [Suspect]
     Indication: HYPERTENSION
     Dosage: 20 MG BID PO
     Route: 048
     Dates: start: 20040807, end: 20061124
  2. PL GRAN. [Concomitant]
  3. NICHOLASE [Concomitant]
  4. HUSCODE [Concomitant]
  5. ETIZOLAM [Concomitant]
  6. ZANTAC [Concomitant]
  7. MEVALOTIN [Concomitant]
  8. NORVASC [Concomitant]

REACTIONS (3)
  - ACUTE RESPIRATORY DISTRESS SYNDROME [None]
  - HYPERLIPIDAEMIA [None]
  - INTERSTITIAL LUNG DISEASE [None]
